FAERS Safety Report 4583301-6 (Version None)
Quarter: 2005Q1

REPORT INFORMATION
  Report Type: 
  Country: None (occurrence: None)
  Receive Date: 20050125
  Receipt Date: 20040816
  Transmission Date: 20050727
  Serious: Yes (Other)
  Sender: FDA-Public Use
  Company Number: USA040259398

PATIENT
  Age: 80 Year
  Sex: Female
  Weight: 44 kg

DRUGS (11)
  1. EVISTA [Suspect]
     Indication: OSTEOPOROSIS
     Dosage: 60 MG/1 DAY
     Dates: start: 19960101
  2. FORTEO [Suspect]
     Indication: OSTEOPOROSIS
     Dates: start: 20040101
  3. FOSAMAX [Concomitant]
  4. CALCIUM GLUCONATE [Concomitant]
  5. TRAZADONE (TRAZODONE) [Concomitant]
  6. AMBIEN [Concomitant]
  7. DICYCLOVERINE [Concomitant]
  8. MULTI-VITAMIN [Concomitant]
  9. VITAMIN E [Concomitant]
  10. VITAMIN C [Concomitant]
  11. ASPIRIN [Concomitant]

REACTIONS (7)
  - ACCIDENT [None]
  - HIP ARTHROPLASTY [None]
  - INJECTION SITE HAEMORRHAGE [None]
  - LIMB INJURY [None]
  - OSTEOPOROSIS [None]
  - PAIN IN EXTREMITY [None]
  - THERAPY NON-RESPONDER [None]
